FAERS Safety Report 24738229 (Version 1)
Quarter: 2024Q4

REPORT INFORMATION
  Report Type: Report from Study
  Country: BR (occurrence: BR)
  Receive Date: 20241216
  Receipt Date: 20241216
  Transmission Date: 20250114
  Serious: Yes (Hospitalization, Other)
  Sender: BAYER HEALTHCARE PHARMACEUTICALS INC.
  Company Number: BR-BAYER-2024A173186

PATIENT
  Sex: Male

DRUGS (2)
  1. NEXAVAR [Suspect]
     Active Substance: SORAFENIB
     Indication: Hepatocellular carcinoma
     Dosage: 400 MG, QD
     Dates: start: 202311, end: 202411
  2. METFORMIN [Concomitant]
     Active Substance: METFORMIN HYDROCHLORIDE
     Indication: Diabetes mellitus
     Dosage: UNK

REACTIONS (6)
  - Wound [Recovered/Resolved]
  - Intensive care [Recovered/Resolved]
  - Hepatic cirrhosis [None]
  - Skin lesion [Recovered/Resolved]
  - Hypersensitivity [Recovered/Resolved]
  - Product use issue [None]

NARRATIVE: CASE EVENT DATE: 20240101
